FAERS Safety Report 4540552-4 (Version None)
Quarter: 2004Q4

REPORT INFORMATION
  Report Type: 
  Country: None (occurrence: None)
  Receive Date: 20041228
  Receipt Date: 20041228
  Transmission Date: 20050328
  Serious: Yes (Life-Threatening, Hospitalization)
  Sender: FDA-Public Use
  Company Number: None

PATIENT
  Age: 53 Year
  Sex: Male
  Weight: 107.9561 kg

DRUGS (1)
  1. BEXTRA [Suspect]
     Indication: ROTATOR CUFF SYNDROME
     Dosage: 20 MG
     Dates: start: 20030601, end: 20041001

REACTIONS (2)
  - IMMUNE SYSTEM DISORDER [None]
  - PULMONARY EMBOLISM [None]
